FAERS Safety Report 16145916 (Version 5)
Quarter: 2019Q3

REPORT INFORMATION
  Report Type: Spontaneous
  Country: JP (occurrence: JP)
  Receive Date: 20190402
  Receipt Date: 20190911
  Transmission Date: 20191004
  Serious: Yes (Death, Hospitalization)
  Sender: FDA-Public Use
  Company Number: JP-ASTRAZENECA-2019SE07618

PATIENT
  Age: 27468 Day
  Sex: Female
  Weight: 35 kg

DRUGS (10)
  1. TRAMAL [Concomitant]
     Active Substance: TRAMADOL
     Indication: CANCER PAIN
     Route: 048
     Dates: start: 20181018, end: 20181114
  2. THYRADIN S [Concomitant]
     Active Substance: LEVOTHYROXINE SODIUM
     Indication: HYPOTHYROIDISM
     Route: 048
     Dates: end: 20181220
  3. NEXIUM [Concomitant]
     Active Substance: ESOMEPRAZOLE MAGNESIUM
     Indication: GASTROOESOPHAGEAL REFLUX DISEASE
     Route: 048
     Dates: start: 20181015, end: 20181220
  4. CALONAL [Concomitant]
     Active Substance: ACETAMINOPHEN
     Indication: ANALGESIC THERAPY
     Route: 048
     Dates: start: 20181011, end: 20181031
  5. OXINORM [Concomitant]
     Indication: PAIN
     Dosage: AS REQUIRED FOR PAIN
     Route: 048
     Dates: start: 20181019
  6. OXYCONTIN TR [Concomitant]
     Indication: CANCER PAIN
     Route: 048
     Dates: start: 20181019, end: 20181105
  7. TAGRISSO [Suspect]
     Active Substance: OSIMERTINIB
     Indication: NON-SMALL CELL LUNG CANCER
     Route: 048
     Dates: start: 20181023, end: 20181220
  8. MAGNESIUM OXIDE. [Concomitant]
     Active Substance: MAGNESIUM OXIDE
     Indication: CONSTIPATION
     Route: 048
     Dates: start: 20181011, end: 20181120
  9. CODEINE PHOSPHATE HYDRATE [Concomitant]
     Active Substance: CODEINE PHOSPHATE
     Indication: COUGH
     Route: 048
     Dates: start: 20181012, end: 20181031
  10. NOVAMIN [Concomitant]
     Indication: VOMITING
     Route: 048
     Dates: start: 20181011, end: 20181109

REACTIONS (5)
  - Interstitial lung disease [Recovering/Resolving]
  - Respiratory failure [Fatal]
  - Malignant neoplasm progression [Fatal]
  - Urinary tract infection [Recovering/Resolving]
  - Hypertonic bladder [Recovering/Resolving]

NARRATIVE: CASE EVENT DATE: 20181025
